FAERS Safety Report 16515895 (Version 1)
Quarter: 2019Q3

REPORT INFORMATION
  Report Type: Spontaneous
  Country: US (occurrence: US)
  Receive Date: 20190702
  Receipt Date: 20190702
  Transmission Date: 20191004
  Serious: Yes (Disabling, Other)
  Sender: FDA-Public Use
  Company Number: None

PATIENT
  Age: 36 Year
  Sex: Male
  Weight: 83.25 kg

DRUGS (1)
  1. CIPRO [Suspect]
     Active Substance: CIPROFLOXACIN HYDROCHLORIDE
     Indication: PROSTATE INFECTION
     Dosage: ?          QUANTITY:1 TABLET(S);?
     Route: 048
     Dates: start: 20190620, end: 20190629

REACTIONS (15)
  - Fatigue [None]
  - Infection [None]
  - Panic attack [None]
  - Anxiety [None]
  - Paranoia [None]
  - Tension [None]
  - Catatonia [None]
  - Thinking abnormal [None]
  - Stress [None]
  - Obsessive-compulsive symptom [None]
  - Agitation [None]
  - Mental disorder [None]
  - Depression [None]
  - Illness anxiety disorder [None]
  - Social avoidant behaviour [None]

NARRATIVE: CASE EVENT DATE: 20190624
